FAERS Safety Report 8031845-7 (Version None)
Quarter: 2012Q1

REPORT INFORMATION
  Report Type: 
  Country: None (occurrence: None)
  Receive Date: 20120109
  Receipt Date: 20120105
  Transmission Date: 20120608
  Serious: Yes (Death, Hospitalization)
  Sender: FDA-Public Use
  Company Number: BR-ASTRAZENECA-2011SE19200

PATIENT
  Sex: Male
  Weight: 50 kg

DRUGS (2)
  1. ATACAND HCT [Suspect]
     Dosage: 16/12.5 MG HALF TABLET A DAY
     Route: 048
     Dates: start: 20090101, end: 20110401
  2. BETABLOCKER [Concomitant]

REACTIONS (9)
  - ANAEMIA [None]
  - NEPHROSCLEROSIS [None]
  - HAEMOLYSIS [None]
  - EOSINOPHIL COUNT INCREASED [None]
  - VERTIGO [None]
  - HYPERKALAEMIA [None]
  - DEATH [None]
  - BLOOD UREA INCREASED [None]
  - SINUSITIS [None]
